FAERS Safety Report 18615313 (Version 2)
Quarter: 2021Q1

REPORT INFORMATION
  Report Type: Other
  Country: RU (occurrence: RU)
  Receive Date: 20201215
  Receipt Date: 20210104
  Transmission Date: 20210419
  Serious: Yes (Hospitalization)
  Sender: FDA-Public Use
  Company Number: RU-ROCHE-2729455

PATIENT
  Age: 35 Year
  Sex: Female

DRUGS (24)
  1. METHYLPREDNISOLONE. [Suspect]
     Active Substance: METHYLPREDNISOLONE
     Indication: AUTOIMMUNE MYOCARDITIS
     Route: 065
  2. BISOPROLOL [Concomitant]
     Active Substance: BISOPROLOL
     Indication: SPEECH DISORDER
  3. ACETAZOLAMIDE. [Concomitant]
     Active Substance: ACETAZOLAMIDE
     Indication: DIPLOPIA
  4. HYDROCHLOROTHIAZIDE. [Concomitant]
     Active Substance: HYDROCHLOROTHIAZIDE
     Indication: SPEECH DISORDER
  5. HYDROCHLOROTHIAZIDE. [Concomitant]
     Active Substance: HYDROCHLOROTHIAZIDE
     Indication: DIPLOPIA
  6. TENOFOVIR [Concomitant]
     Active Substance: TENOFOVIR
     Indication: CHRONIC HEPATITIS B
  7. FUROSEMIDE. [Concomitant]
     Active Substance: FUROSEMIDE
     Indication: DIPLOPIA
  8. OMEPRAZOLE. [Concomitant]
     Active Substance: OMEPRAZOLE
     Indication: DIPLOPIA
  9. PERINDOPRIL [Concomitant]
     Active Substance: PERINDOPRIL
  10. METHYLPREDNISOLONE. [Suspect]
     Active Substance: METHYLPREDNISOLONE
     Dosage: 800?400 MG/DAY
     Route: 065
  11. SALBUTAMOL [Concomitant]
     Active Substance: ALBUTEROL
     Indication: ASTHMA
  12. SPIRONOLACTONE. [Concomitant]
     Active Substance: SPIRONOLACTONE
     Indication: SPEECH DISORDER
  13. AMIODARONE [Concomitant]
     Active Substance: AMIODARONE
     Dosage: 400?200 MG/DAY
  14. MYCOPHENOLATE MOFETIL. [Suspect]
     Active Substance: MYCOPHENOLATE MOFETIL
     Indication: AUTOIMMUNE MYOCARDITIS
  15. METHYLPREDNISOLONE. [Suspect]
     Active Substance: METHYLPREDNISOLONE
     Indication: CHRONIC HEPATITIS B
     Dosage: HE DOSE WAS RESTRICTED BY OBESITY AND TAPERED TO 4 MG/DAY
     Route: 065
  16. SPIRONOLACTONE. [Concomitant]
     Active Substance: SPIRONOLACTONE
     Indication: DIPLOPIA
  17. DABIGATRAN [Concomitant]
     Active Substance: DABIGATRAN
  18. MYCOPHENOLATE MOFETIL. [Suspect]
     Active Substance: MYCOPHENOLATE MOFETIL
     Indication: CHRONIC HEPATITIS B
     Route: 065
  19. EUPHYLLINE (RUSSIA) [Concomitant]
     Indication: ASTHMA
  20. BISOPROLOL [Concomitant]
     Active Substance: BISOPROLOL
     Indication: DIPLOPIA
  21. FUROSEMIDE. [Concomitant]
     Active Substance: FUROSEMIDE
     Indication: SPEECH DISORDER
     Dosage: 40?80 MG
  22. PERINDOPRIL [Concomitant]
     Active Substance: PERINDOPRIL
  23. ACETAZOLAMIDE. [Concomitant]
     Active Substance: ACETAZOLAMIDE
     Indication: SPEECH DISORDER
  24. OMEPRAZOLE. [Concomitant]
     Active Substance: OMEPRAZOLE
     Indication: SPEECH DISORDER

REACTIONS (2)
  - COVID-19 pneumonia [Recovered/Resolved]
  - Respiratory failure [Unknown]

NARRATIVE: CASE EVENT DATE: 20200520
